FAERS Safety Report 5253894-4 (Version None)
Quarter: 2007Q1

REPORT INFORMATION
  Report Type: 
  Country: None (occurrence: None)
  Receive Date: 20070228
  Receipt Date: 20070228
  Transmission Date: 20070707
  Serious: No
  Sender: FDA-Public Use
  Company Number: None

PATIENT
  Sex: Female

DRUGS (1)
  1. FENTANYL TRANSDERMAL SYSTEM [Suspect]
     Indication: POST LAMINECTOMY SYNDROME

REACTIONS (5)
  - ADVERSE EVENT [None]
  - CONDITION AGGRAVATED [None]
  - HYPERHIDROSIS [None]
  - MEDICAL DEVICE COMPLICATION [None]
  - THERAPEUTIC RESPONSE UNEXPECTED WITH DRUG SUBSTITUTION [None]
